FAERS Safety Report 5427088-3 (Version None)
Quarter: 2007Q3

REPORT INFORMATION
  Report Type: 
  Country: None (occurrence: None)
  Receive Date: 20070824
  Receipt Date: 20070824
  Transmission Date: 20080115
  Serious: Yes (Other)
  Sender: FDA-Public Use
  Company Number: None

PATIENT
  Sex: Female
  Weight: 82.5547 kg

DRUGS (1)
  1. STADOL [Suspect]
     Indication: ANALGESIC THERAPY
     Dosage: 1 MG/1ML   1   IV
     Route: 042
     Dates: start: 20070302, end: 20070302

REACTIONS (12)
  - ANAESTHETIC COMPLICATION [None]
  - BALANCE DISORDER [None]
  - DIZZINESS [None]
  - DRUG INEFFECTIVE [None]
  - EAR INFECTION [None]
  - HEADACHE [None]
  - HYPOACUSIS [None]
  - MOTION SICKNESS [None]
  - MUSCULOSKELETAL STIFFNESS [None]
  - SINUSITIS [None]
  - VERTIGO [None]
  - WEIGHT DECREASED [None]
